FAERS Safety Report 13978033 (Version 2)
Quarter: 2017Q4

REPORT INFORMATION
  Report Type: Spontaneous
  Country: JP (occurrence: JP)
  Receive Date: 20170915
  Receipt Date: 20171018
  Transmission Date: 20180321
  Serious: Yes (Hospitalization, Disabling, Other)
  Sender: FDA-Public Use
  Company Number: JP-JNJFOC-20170912003

PATIENT
  Age: 73 Year
  Sex: Male
  Weight: 65 kg

DRUGS (12)
  1. AMLODIPINE [Concomitant]
     Active Substance: AMLODIPINE BESYLATE
     Indication: BLOOD PRESSURE MANAGEMENT
     Route: 048
     Dates: start: 20170824
  2. ARTIST [Concomitant]
     Active Substance: CARVEDILOL
     Indication: N-TERMINAL PROHORMONE BRAIN NATRIURETIC PEPTIDE INCREASED
     Route: 048
     Dates: start: 20110411
  3. XARELTO [Suspect]
     Active Substance: RIVAROXABAN
     Indication: CEREBROVASCULAR ACCIDENT PROPHYLAXIS
     Route: 048
     Dates: start: 201003
  4. BILASTINE [Concomitant]
     Active Substance: BILASTINE
     Indication: RHINORRHOEA
     Route: 048
     Dates: start: 20170210
  5. XARELTO [Suspect]
     Active Substance: RIVAROXABAN
     Indication: CEREBROVASCULAR ACCIDENT PROPHYLAXIS
     Route: 048
  6. SINGULAIR [Concomitant]
     Active Substance: MONTELUKAST SODIUM
     Indication: RHINORRHOEA
     Route: 048
     Dates: start: 20131108
  7. XARELTO [Suspect]
     Active Substance: RIVAROXABAN
     Indication: ATRIAL FIBRILLATION
     Route: 048
     Dates: start: 201003
  8. EPINASTINE. [Concomitant]
     Active Substance: EPINASTINE HYDROCHLORIDE
     Route: 048
  9. XARELTO [Suspect]
     Active Substance: RIVAROXABAN
     Indication: ATRIAL FIBRILLATION
     Route: 048
  10. METHYCOBAL [Concomitant]
     Active Substance: METHYLCOBALAMIN
     Indication: TINNITUS
     Route: 065
     Dates: start: 20160712
  11. AMITIZA [Concomitant]
     Active Substance: LUBIPROSTONE
     Indication: DYSCHEZIA
     Dosage: 24 MICROGRAM
     Route: 048
     Dates: start: 20170824
  12. VERAPAMIL HYDROCHLORIDE. [Concomitant]
     Active Substance: VERAPAMIL HYDROCHLORIDE
     Indication: PROPHYLAXIS
     Route: 048
     Dates: start: 20110221

REACTIONS (2)
  - Thalamus haemorrhage [Recovered/Resolved with Sequelae]
  - Hemiparesis [Unknown]

NARRATIVE: CASE EVENT DATE: 20170420
